FAERS Safety Report 6283834-0 (Version None)
Quarter: 2009Q3

REPORT INFORMATION
  Report Type: 
  Country: None (occurrence: None)
  Receive Date: 20090724
  Receipt Date: 20090715
  Transmission Date: 20100115
  Serious: Yes (Hospitalization)
  Sender: FDA-Public Use
  Company Number: US-ASTRAZENECA-2009SE05066

PATIENT
  Age: 32 Year
  Sex: Male

DRUGS (7)
  1. QUETIAPINE FUMARATE [Suspect]
  2. VERAPAMIL [Suspect]
  3. LEVOTHYROXINE SODIUM [Suspect]
  4. BUPROPION HCL [Suspect]
  5. ZOLPIDEM CR [Suspect]
  6. CLONAZEPAM [Suspect]
  7. BENAZEPRIL HYDROCHLORIDE [Suspect]
     Dosage: 32 TABLETS, UNKNOWN DOSE

REACTIONS (10)
  - DEPRESSED LEVEL OF CONSCIOUSNESS [None]
  - DRY SKIN [None]
  - GASTROINTESTINAL SOUNDS ABNORMAL [None]
  - INCOHERENT [None]
  - LUNG INFILTRATION [None]
  - MULTIPLE DRUG OVERDOSE [None]
  - MYDRIASIS [None]
  - NODAL ARRHYTHMIA [None]
  - PUPILLARY REFLEX IMPAIRED [None]
  - SHOCK [None]
